FAERS Safety Report 18049177 (Version 3)
Quarter: 2021Q1

REPORT INFORMATION
  Report Type: Spontaneous
  Country: US (occurrence: US)
  Receive Date: 20200721
  Receipt Date: 20210113
  Transmission Date: 20210419
  Serious: Yes (Other)
  Sender: FDA-Public Use
  Company Number: US-PFIZER INC-2020277135

PATIENT
  Age: 86 Year
  Sex: Male

DRUGS (1)
  1. LYRICA [Suspect]
     Active Substance: PREGABALIN
     Dosage: 150 MG, AS NEEDED (PATIENT TOOK PREGABALIN 150 MG)/ (1 CAP PO BID (TWO TIMES A DAY) PRN (AS NEEDED))
     Route: 048

REACTIONS (6)
  - Hypoacusis [Unknown]
  - COVID-19 [Unknown]
  - Dizziness [Recovering/Resolving]
  - Pneumonia [Unknown]
  - Vertigo [Recovering/Resolving]
  - Oxygen saturation decreased [Unknown]
